FAERS Safety Report 6872464-5 (Version None)
Quarter: 2010Q3

REPORT INFORMATION
  Report Type: 
  Country: None (occurrence: None)
  Receive Date: 20100723
  Receipt Date: 20080926
  Transmission Date: 20110219
  Serious: No
  Sender: FDA-Public Use
  Company Number: US-PFIZER INC-2008082390

PATIENT
  Sex: Female
  Weight: 77.3 kg

DRUGS (17)
  1. CHANTIX [Suspect]
     Indication: SMOKING CESSATION THERAPY
     Dates: start: 20080901, end: 20080901
  2. LASIX [Concomitant]
  3. GABAPENTIN [Concomitant]
  4. FLEXERIL [Concomitant]
  5. MIRTAZAPINE [Concomitant]
  6. TRAZODONE [Concomitant]
  7. POTASSIUM [Concomitant]
  8. PENTOXIFYLLINE [Concomitant]
  9. DEPAKOTE [Concomitant]
  10. PRILOSEC [Concomitant]
  11. SEROQUEL [Concomitant]
  12. ARICEPT [Concomitant]
  13. PROPACET 100 [Concomitant]
  14. HYDROCODONE BITARTRATE [Concomitant]
  15. COMBIVENT [Concomitant]
  16. ALBUTEROL [Concomitant]
  17. IPRATROPIUM BROMIDE [Concomitant]

REACTIONS (2)
  - HEADACHE [None]
  - NAUSEA [None]
